FAERS Safety Report 14527061 (Version 2)
Quarter: 2018Q3

REPORT INFORMATION
  Report Type: Spontaneous
  Country: US (occurrence: US)
  Receive Date: 20180213
  Receipt Date: 20180919
  Transmission Date: 20181010
  Serious: Yes (Other)
  Sender: FDA-Public Use
  Company Number: US-VANDA PHARMACEUTICALS, INC-2018TASUS002072

PATIENT
  Sex: Female

DRUGS (3)
  1. BENADRYL [Concomitant]
     Active Substance: DIPHENHYDRAMINE HYDROCHLORIDE
     Indication: RASH
     Dosage: UNK, PRN
  2. HETLIOZ [Suspect]
     Active Substance: TASIMELTEON
     Dosage: 20 MG, DAILY AT BEDTIME
     Route: 048
  3. HETLIOZ [Suspect]
     Active Substance: TASIMELTEON
     Indication: NON-24-HOUR SLEEP-WAKE DISORDER
     Dosage: 20 MG, DAILY AT BEDTIME
     Route: 048
     Dates: start: 20170930

REACTIONS (1)
  - Arterial occlusive disease [Unknown]
